FAERS Safety Report 9424045 (Version 2)
Quarter: 2019Q2

REPORT INFORMATION
  Report Type: Spontaneous
  Country: DE (occurrence: DE)
  Receive Date: 20130729
  Receipt Date: 20190628
  Transmission Date: 20190711
  Serious: Yes (Congenital Anomaly, Other)
  Sender: FDA-Public Use
  Company Number: GXKR2013DE002478

PATIENT
  Age: 1 Day
  Sex: Male
  Weight: 2.93 kg

DRUGS (4)
  1. VALIUM [Concomitant]
     Active Substance: DIAZEPAM
     Indication: FOETAL EXPOSURE DURING PREGNANCY
     Dosage: UNK
     Route: 064
  2. PROMETHAZINE [Suspect]
     Active Substance: PROMETHAZINE\PROMETHAZINE HYDROCHLORIDE
     Indication: FOETAL EXPOSURE DURING PREGNANCY
     Dosage: UNK
     Route: 064
     Dates: start: 20040702, end: 20050410
  3. TREVILOR RETARD [Concomitant]
     Active Substance: VENLAFAXINE HYDROCHLORIDE
     Indication: FOETAL EXPOSURE DURING PREGNANCY
     Dosage: UNK
     Route: 064
  4. FOLATE [Concomitant]
     Active Substance: FOLATE SODIUM
     Indication: FOETAL EXPOSURE DURING PREGNANCY
     Dosage: MATERNAL DOSE: 1X0.4 [MG/D ]
     Route: 064

REACTIONS (4)
  - Pulmonary artery stenosis congenital [Unknown]
  - Small for dates baby [Unknown]
  - Foetal exposure during pregnancy [Recovered/Resolved]
  - Atrial septal defect [Unknown]

NARRATIVE: CASE EVENT DATE: 20040702
